FAERS Safety Report 13732406 (Version 1)
Quarter: 2017Q3

REPORT INFORMATION
  Report Type: Spontaneous
  Country: US (occurrence: US)
  Receive Date: 20170707
  Receipt Date: 20170707
  Transmission Date: 20171127
  Serious: No
  Sender: FDA-Public Use
  Company Number: US-SA-2017SA105708

PATIENT
  Sex: Female

DRUGS (2)
  1. DUPIXENT [Suspect]
     Active Substance: DUPILUMAB
     Indication: ECZEMA
     Route: 065
     Dates: start: 20170602, end: 20170602
  2. DUPIXENT [Suspect]
     Active Substance: DUPILUMAB
     Indication: ECZEMA
     Route: 065
     Dates: start: 20170519, end: 20170519

REACTIONS (4)
  - Musculoskeletal pain [Unknown]
  - Injection site pruritus [Unknown]
  - Arthralgia [Unknown]
  - Off label use [Unknown]
